FAERS Safety Report 10164679 (Version 1)
Quarter: 2014Q2

REPORT INFORMATION
  Report Type: Spontaneous
  Country: US (occurrence: US)
  Receive Date: 20140510
  Receipt Date: 20140510
  Transmission Date: 20141212
  Serious: No
  Sender: FDA-Public Use
  Company Number: US-BRISTOL-MYERS SQUIBB COMPANY-20381190

PATIENT
  Age: 63 Year
  Sex: Female
  Weight: 86.17 kg

DRUGS (3)
  1. BYETTA [Suspect]
     Indication: DIABETES MELLITUS
     Route: 058
     Dates: start: 2013
  2. LANTUS [Concomitant]
  3. SILOSTAR [Concomitant]

REACTIONS (2)
  - Arthritis [Unknown]
  - Drug ineffective [Unknown]
